FAERS Safety Report 7338965-0 (Version None)
Quarter: 2011Q1

REPORT INFORMATION
  Report Type: 
  Country: None (occurrence: None)
  Receive Date: 20110308
  Receipt Date: 20110223
  Transmission Date: 20110831
  Serious: No
  Sender: FDA-Public Use
  Company Number: DE-ELI_LILLY_AND_COMPANY-DE201102006201

PATIENT
  Age: 40 Year
  Sex: Female

DRUGS (3)
  1. DOMINAL [Concomitant]
  2. ZYPREXA [Suspect]
     Indication: DECREASED APPETITE
     Dosage: 10 MG, UNK
     Route: 048
     Dates: start: 20070101
  3. CIPRALEX [Concomitant]

REACTIONS (2)
  - OFF LABEL USE [None]
  - LEUKOPENIA [None]
